FAERS Safety Report 7338600-1 (Version None)
Quarter: 2011Q1

REPORT INFORMATION
  Report Type: 
  Country: None (occurrence: None)
  Receive Date: 20110308
  Receipt Date: 20110225
  Transmission Date: 20110831
  Serious: Yes (Hospitalization)
  Sender: FDA-Public Use
  Company Number: US-BAXTER-2011BH004057

PATIENT
  Age: 58 Year
  Sex: Female

DRUGS (1)
  1. DIANEAL [Suspect]
     Indication: PERITONEAL DIALYSIS
     Route: 033
     Dates: start: 20101001, end: 20110201

REACTIONS (6)
  - BLOOD ALBUMIN DECREASED [None]
  - ASTHENIA [None]
  - DIZZINESS [None]
  - SKIN ULCER [None]
  - HYPOTENSION [None]
  - DECREASED APPETITE [None]
